FAERS Safety Report 25616898 (Version 1)
Quarter: 2025Q3

REPORT INFORMATION
  Report Type: Spontaneous
  Country: US (occurrence: US)
  Receive Date: 20250729
  Receipt Date: 20250729
  Transmission Date: 20251021
  Serious: No
  Sender: ALEXION PHARMACEUTICALS
  Company Number: US-AstraZeneca-CH-00918861AP

PATIENT
  Age: 42 Year
  Sex: Female

DRUGS (1)
  1. SYMBICORT [Suspect]
     Active Substance: BUDESONIDE\FORMOTEROL FUMARATE DIHYDRATE
     Dosage: UNK UNK, 1 PUFF TWICE A DAY BID
     Route: 065
     Dates: start: 202505

REACTIONS (8)
  - Device use issue [Unknown]
  - Product dose omission issue [Unknown]
  - Headache [Unknown]
  - Palpitations [Unknown]
  - Tremor [Unknown]
  - Asthma [Unknown]
  - Wrong technique in product usage process [Unknown]
  - Product communication issue [Unknown]

NARRATIVE: CASE EVENT DATE: 20250723
